FAERS Safety Report 18521476 (Version 1)
Quarter: 2020Q4

REPORT INFORMATION
  Report Type: Spontaneous
  Country: US (occurrence: US)
  Receive Date: 20201118
  Receipt Date: 20201118
  Transmission Date: 20210114
  Serious: Yes (Other)
  Sender: FDA-Public Use
  Company Number: None

PATIENT
  Age: 59 Year
  Sex: Female
  Weight: 88.45 kg

DRUGS (1)
  1. PALIPERIDONE 6MG [Suspect]
     Active Substance: PALIPERIDONE
     Indication: SCHIZOPHRENIA
     Route: 048
     Dates: start: 20000305

REACTIONS (2)
  - Product size issue [None]
  - Choking [None]

NARRATIVE: CASE EVENT DATE: 20000305
